FAERS Safety Report 9865901 (Version 1)
Quarter: 2014Q1

REPORT INFORMATION
  Report Type: Spontaneous
  Country: US (occurrence: US)
  Receive Date: 20140203
  Receipt Date: 20140203
  Transmission Date: 20141002
  Serious: No
  Sender: FDA-Public Use
  Company Number: US-ALLERGAN-1312292US

PATIENT
  Age: 75 Year
  Sex: Female

DRUGS (5)
  1. RESTASIS [Suspect]
     Indication: DRY EYE
     Dosage: 2 GTT, BID
     Route: 047
  2. GENTEAL                            /00445101/ [Concomitant]
     Indication: DRY EYE
     Dosage: 2 GTT, QHS
     Route: 047
  3. MEDICATIONS FOR BLOOD PRESSURE [Concomitant]
     Indication: HYPERTENSION
     Dosage: UNK, QD
     Route: 048
  4. MEDICATIONS FOR A FIB [Concomitant]
     Indication: ATRIAL FIBRILLATION
     Dosage: UNK, QD
     Route: 048
  5. STRESS REDUCER [Concomitant]
     Indication: STRESS
     Dosage: UNK

REACTIONS (2)
  - Dry mouth [Unknown]
  - Oral discomfort [Unknown]
